FAERS Safety Report 7769030-6 (Version None)
Quarter: 2011Q3

REPORT INFORMATION
  Report Type: 
  Country: None (occurrence: None)
  Receive Date: 20110922
  Receipt Date: 20110711
  Transmission Date: 20111222
  Serious: No
  Sender: FDA-Public Use
  Company Number: US-ASTRAZENECA-2011SE41334

PATIENT
  Age: 49 Year
  Sex: Female

DRUGS (2)
  1. SEROQUEL [Suspect]
     Indication: BIPOLAR DISORDER
     Route: 048
     Dates: start: 20110616, end: 20110702
  2. KLONOPIN [Concomitant]
     Indication: ANXIETY
     Dosage: 0.5 THREE TIMES DAILY
     Route: 048

REACTIONS (3)
  - NERVOUSNESS [None]
  - ANGER [None]
  - PANIC ATTACK [None]
